FAERS Safety Report 9722265 (Version 2)
Quarter: 2013Q4

REPORT INFORMATION
  Report Type: Spontaneous
  Country: US (occurrence: US)
  Receive Date: 20131202
  Receipt Date: 20131216
  Transmission Date: 20140711
  Serious: Yes (Other)
  Sender: FDA-Public Use
  Company Number: US-JNJFOC-20131113596

PATIENT
  Sex: Male
  Weight: 81.65 kg

DRUGS (2)
  1. RISPERDAL CONSTA [Suspect]
     Indication: SCHIZOPHRENIA
     Route: 030
     Dates: start: 201311
  2. GEODON [Suspect]
     Indication: PRODUCT USED FOR UNKNOWN INDICATION
     Route: 065

REACTIONS (12)
  - Presyncope [Recovered/Resolved]
  - Nervousness [Unknown]
  - Back pain [Unknown]
  - Musculoskeletal stiffness [Unknown]
  - Inappropriate schedule of drug administration [Unknown]
  - Wrong technique in drug usage process [Recovered/Resolved]
  - Nasal dryness [Unknown]
  - Eye movement disorder [Unknown]
  - Discomfort [Unknown]
  - Somnolence [Unknown]
  - Nervousness [Unknown]
  - Lacrimation increased [Recovered/Resolved]
